FAERS Safety Report 4754852-6 (Version None)
Quarter: 2005Q3

REPORT INFORMATION
  Report Type: 
  Country: None (occurrence: None)
  Receive Date: 20050826
  Receipt Date: 20050826
  Transmission Date: 20060218
  Serious: No
  Sender: FDA-Public Use
  Company Number: None

PATIENT
  Age: 50 Year
  Sex: Female
  Weight: 68.0396 kg

DRUGS (4)
  1. FENTANYL [Suspect]
     Indication: COMPLEX REGIONAL PAIN SYNDROME
     Dosage: 100 PATCHES
     Dates: start: 20050601
  2. NEURONTIN [Concomitant]
  3. MOTRIN [Concomitant]
  4. NORCO [Concomitant]

REACTIONS (4)
  - FEELING ABNORMAL [None]
  - LETHARGY [None]
  - THERAPEUTIC AGENT TOXICITY [None]
  - THERAPEUTIC RESPONSE UNEXPECTED WITH DRUG SUBSTITUTION [None]
